FAERS Safety Report 20082132 (Version 2)
Quarter: 2021Q4

REPORT INFORMATION
  Report Type: Spontaneous
  Country: ES (occurrence: None)
  Receive Date: 20211117
  Receipt Date: 20211215
  Transmission Date: 20220303
  Serious: Yes (Hospitalization)
  Sender: FDA-Public Use
  Company Number: 2021A799241

PATIENT
  Age: 30895 Day
  Sex: Male
  Weight: 89 kg

DRUGS (13)
  1. CALQUENCE [Suspect]
     Active Substance: ACALABRUTINIB
     Indication: Chronic lymphocytic leukaemia
     Route: 048
     Dates: start: 202109
  2. OLMESARTAN SANDOZ [Concomitant]
     Dates: start: 20210503
  3. NITROFIX [Concomitant]
     Dosage: 1 STICKER/EVERY 24 H
     Dates: start: 20210907
  4. LEDORFOLIN [Concomitant]
     Dates: start: 20210503
  5. ACETAMINOPHEN [Concomitant]
     Active Substance: ACETAMINOPHEN
     Dates: start: 20210503
  6. ELIQUIS [Concomitant]
     Active Substance: APIXABAN
     Dates: start: 20210210
  7. SIMVASTATIN [Concomitant]
     Active Substance: SIMVASTATIN
     Dates: start: 20210210
  8. SULFAMETHOXAZOLE\TRIMETHOPRIM [Concomitant]
     Active Substance: SULFAMETHOXAZOLE\TRIMETHOPRIM
     Dosage: 3 TABLETS/EVERY 7 DAYS
     Dates: start: 20210503
  9. FENTANYL [Concomitant]
     Active Substance: FENTANYL
     Dates: start: 20211005
  10. CALCIUM/VITAMINE D3 [Concomitant]
     Dates: start: 20210210
  11. ALMAX [Concomitant]
     Dates: start: 20210907
  12. LERCANIDIPINE [Concomitant]
     Active Substance: LERCANIDIPINE
     Dates: start: 20210907
  13. DOXAZOSIN MESYLATE [Concomitant]
     Active Substance: DOXAZOSIN MESYLATE
     Dates: start: 20210503

REACTIONS (1)
  - Cardiac failure [Recovering/Resolving]

NARRATIVE: CASE EVENT DATE: 20211022
